FAERS Safety Report 6522105-1 (Version None)
Quarter: 2009Q4

REPORT INFORMATION
  Report Type: 
  Country: None (occurrence: None)
  Receive Date: 20091229
  Receipt Date: 20091229
  Transmission Date: 20100525
  Serious: No
  Sender: FDA-Public Use
  Company Number: None

PATIENT
  Age: 62 Year
  Sex: Male
  Weight: 80 kg

DRUGS (7)
  1. CLOFARABINE [Suspect]
     Indication: ACUTE MYELOID LEUKAEMIA
     Dosage: 80 MG IV QD
     Route: 042
     Dates: start: 20091005, end: 20091009
  2. CLOFARABINE [Suspect]
     Indication: LEUKAEMIA RECURRENT
     Dosage: 80 MG IV QD
     Route: 042
     Dates: start: 20091005, end: 20091009
  3. ZANTAC [Concomitant]
  4. DOCUSATE [Concomitant]
  5. VARICONAZOLE [Concomitant]
  6. METHYLPRED [Concomitant]
  7. CEFEPIME [Concomitant]

REACTIONS (8)
  - ACUTE GRAFT VERSUS HOST DISEASE IN INTESTINE [None]
  - ACUTE GRAFT VERSUS HOST DISEASE IN LIVER [None]
  - ACUTE GRAFT VERSUS HOST DISEASE IN SKIN [None]
  - ALANINE AMINOTRANSFERASE INCREASED [None]
  - ASPARTATE AMINOTRANSFERASE INCREASED [None]
  - BLOOD BILIRUBIN INCREASED [None]
  - DIARRHOEA [None]
  - RASH [None]
